FAERS Safety Report 6199013-1 (Version None)
Quarter: 2009Q2

REPORT INFORMATION
  Report Type: 
  Country: None (occurrence: None)
  Receive Date: 20090520
  Receipt Date: 20090520
  Transmission Date: 20091009
  Serious: No
  Sender: FDA-Public Use
  Company Number: None

PATIENT
  Age: 59 Year
  Sex: Male

DRUGS (1)
  1. MOVIPREP [Suspect]
     Indication: COLONOSCOPY
     Dosage: 2 POUCHES IN 1 LITER OF WATER PO
     Route: 048
     Dates: start: 20090519, end: 20090519

REACTIONS (3)
  - ABDOMINAL DISTENSION [None]
  - NAUSEA [None]
  - VOMITING [None]
